FAERS Safety Report 5034731-X (Version None)
Quarter: 2006Q2

REPORT INFORMATION
  Report Type: 
  Country: None (occurrence: None)
  Receive Date: 20060621
  Receipt Date: 20060608
  Transmission Date: 20061013
  Serious: Yes (Hospitalization)
  Sender: FDA-Public Use
  Company Number: 601#1#2006-00002

PATIENT
  Age: 57 Year
  Sex: Male

DRUGS (1)
  1. VASAPROSTAN [Suspect]
     Indication: PERIPHERAL ARTERIAL OCCLUSIVE DISEASE
     Dosage: 60 MCG (20 MCG 3 IN 3 HOURS (S))
     Route: 042
     Dates: start: 20060322, end: 20060405

REACTIONS (3)
  - BODY TEMPERATURE INCREASED [None]
  - LUNG INFILTRATION [None]
  - THERAPEUTIC PRODUCT CONTAMINATION [None]
